FAERS Safety Report 14399257 (Version 2)
Quarter: 2018Q1

REPORT INFORMATION
  Report Type: Spontaneous
  Country: US (occurrence: US)
  Receive Date: 20180117
  Receipt Date: 20180226
  Transmission Date: 20180509
  Serious: Yes (Hospitalization)
  Sender: FDA-Public Use
  Company Number: US-JNJFOC-20171120602

PATIENT
  Age: 49 Year
  Sex: Female

DRUGS (4)
  1. XARELTO [Suspect]
     Active Substance: RIVAROXABAN
     Indication: DEEP VEIN THROMBOSIS
     Dosage: RIVAROXABAN 15 MG 1 TABLET ORALLY EVERY 12 HOURS AND RIVAROXABAN 20 MG 1TABLET ORALLY ONCE A DAY.
     Route: 048
     Dates: start: 20141108
  2. XARELTO [Suspect]
     Active Substance: RIVAROXABAN
     Indication: DEEP VEIN THROMBOSIS
     Dosage: RIVAROXABAN 15 MG 1 TABLET ORALLY EVERY 12 HOURS AND RIVAROXABAN 20 MG 1TABLET ORALLY ONCE A DAY.
     Route: 048
     Dates: end: 201412
  3. XARELTO [Suspect]
     Active Substance: RIVAROXABAN
     Indication: DEEP VEIN THROMBOSIS
     Dosage: RIVAROXABAN 15 MG 1 TABLET ORALLY EVERY 12 HOURS AND RIVAROXABAN 20 MG 1TABLET ORALLY ONCE A DAY.
     Route: 048
     Dates: end: 20150208
  4. XARELTO [Suspect]
     Active Substance: RIVAROXABAN
     Indication: DEEP VEIN THROMBOSIS
     Dosage: RIVAROXABAN 15 MG 1 TABLET ORALLY EVERY 12 HOURS AND RIVAROXABAN 20 MG 1TABLET ORALLY ONCE A DAY.
     Route: 048
     Dates: start: 201412

REACTIONS (1)
  - Post procedural haemorrhage [Recovering/Resolving]

NARRATIVE: CASE EVENT DATE: 20141203
